FAERS Safety Report 7294404-X (Version None)
Quarter: 2011Q1

REPORT INFORMATION
  Report Type: 
  Country: None (occurrence: None)
  Receive Date: 20110215
  Receipt Date: 20110207
  Transmission Date: 20110831
  Serious: Yes (Death, Other)
  Sender: FDA-Public Use
  Company Number: JP-AMGEN-JPNCT2011008658

PATIENT
  Age: 58 Year
  Sex: Male
  Weight: 75 kg

DRUGS (16)
  1. PANITUMUMAB [Suspect]
     Indication: COLORECTAL CANCER METASTATIC
     Dosage: 6 MG/KG, Q2WK
     Route: 041
     Dates: start: 20101004, end: 20101213
  2. IRINOTECAN HYDROCHLORIDE [Suspect]
     Indication: COLORECTAL CANCER
     Route: 041
     Dates: start: 20101004, end: 20101213
  3. ANTIHISTAMINES [Concomitant]
     Indication: PROPHYLAXIS
     Route: 065
  4. MINOMYCIN [Concomitant]
     Route: 048
  5. POLARAMINE [Concomitant]
     Dosage: UNK
     Route: 042
  6. ALOXI [Concomitant]
     Dosage: UNK
     Route: 042
  7. LOSARTAN POTASSIUM AND HYDROCHLOROTHIAZIDE [Concomitant]
     Route: 048
  8. FLUOROURACIL [Suspect]
     Indication: COLORECTAL CANCER
     Route: 040
     Dates: start: 20101004, end: 20101213
  9. FLUOROURACIL [Suspect]
     Route: 041
     Dates: start: 20101004, end: 20101213
  10. CORTICOSTEROIDS [Concomitant]
     Indication: PROPHYLAXIS
     Route: 065
  11. DIAZEPAM [Concomitant]
     Route: 048
  12. MAGMITT [Concomitant]
     Route: 048
  13. DECADRON [Concomitant]
     Route: 042
  14. OXYCONTIN [Concomitant]
     Route: 048
  15. CALCIUM LEVOFOLINATE [Concomitant]
     Indication: COLORECTAL CANCER
     Route: 041
     Dates: start: 20101004, end: 20101213
  16. LOXONIN [Concomitant]
     Route: 048

REACTIONS (6)
  - STOMATITIS [None]
  - NEUTROPHIL COUNT DECREASED [None]
  - WHITE BLOOD CELL COUNT DECREASED [None]
  - DRY SKIN [None]
  - HAEMOGLOBIN DECREASED [None]
  - INTERSTITIAL LUNG DISEASE [None]
